FAERS Safety Report 6119462-7 (Version None)
Quarter: 2009Q1

REPORT INFORMATION
  Report Type: 
  Country: None (occurrence: None)
  Receive Date: 20090316
  Receipt Date: 20090306
  Transmission Date: 20090719
  Serious: Yes (Hospitalization)
  Sender: FDA-Public Use
  Company Number: A0773139A

PATIENT
  Age: 82 Year
  Sex: Female
  Weight: 76.8 kg

DRUGS (11)
  1. AVANDIA [Suspect]
     Indication: DIABETES MELLITUS
     Dosage: 8MG PER DAY
     Route: 048
     Dates: start: 20060105, end: 20070501
  2. AMARYL [Concomitant]
  3. GLUCOTROL [Concomitant]
  4. CYMBALTA [Concomitant]
  5. COZAAR [Concomitant]
  6. PROTONIX [Concomitant]
  7. OSCAL [Concomitant]
  8. PREVACID [Concomitant]
  9. AMBIEN [Concomitant]
  10. GABAPENTIN [Concomitant]
  11. SYNTHROID [Concomitant]

REACTIONS (2)
  - CEREBROVASCULAR ACCIDENT [None]
  - TRANSIENT ISCHAEMIC ATTACK [None]
